FAERS Safety Report 6972876-5 (Version None)
Quarter: 2010Q3

REPORT INFORMATION
  Report Type: 
  Country: None (occurrence: None)
  Receive Date: 20100909
  Receipt Date: 20100514
  Transmission Date: 20110219
  Serious: No
  Sender: FDA-Public Use
  Company Number: US-KINGPHARMUSA00001-K201000615

PATIENT
  Age: 36 Year
  Sex: Female

DRUGS (1)
  1. EMBEDA [Suspect]
     Dosage: 20 MG, BID
     Route: 048
     Dates: start: 20100429, end: 20100513

REACTIONS (3)
  - BLOOD GLUCOSE ABNORMAL [None]
  - MALAISE [None]
  - NAUSEA [None]
